FAERS Safety Report 6270662-5 (Version None)
Quarter: 2009Q3

REPORT INFORMATION
  Report Type: 
  Country: None (occurrence: None)
  Receive Date: 20090714
  Receipt Date: 20090703
  Transmission Date: 20100115
  Serious: Yes (Other)
  Sender: FDA-Public Use
  Company Number: 2009US002656

PATIENT
  Age: 80 Year
  Sex: Male

DRUGS (5)
  1. AMBISOME [Suspect]
     Indication: FUSARIUM INFECTION
     Dosage: 170 MG, UID/QF, IV NOS
     Route: 042
     Dates: start: 20090602, end: 20090615
  2. CEROCRAL (IFENPRODIL TARTRATE) [Concomitant]
  3. GASTER D [Concomitant]
  4. MUCOSTA (REBAMIPIDE) [Concomitant]
  5. BAKTAR (SULFAMETHOXAZOLE, TRIMETHROPRIM) [Concomitant]

REACTIONS (3)
  - CARDIAC FAILURE CONGESTIVE [None]
  - RENAL IMPAIRMENT [None]
  - WHEEZING [None]
